FAERS Safety Report 8345961-3 (Version None)
Quarter: 2012Q2

REPORT INFORMATION
  Report Type: 
  Country: None (occurrence: None)
  Receive Date: 20120507
  Receipt Date: 20120425
  Transmission Date: 20120825
  Serious: Yes (Hospitalization)
  Sender: FDA-Public Use
  Company Number: 2012SP022135

PATIENT
  Age: 67 Year
  Sex: Male
  Weight: 64 kg

DRUGS (2)
  1. PREDNISOLONE [Suspect]
     Indication: PULMONARY FIBROSIS
     Dosage: 30 MG; QD; PO
     Route: 048
     Dates: start: 20100301
  2. BETAMETHASONE [Suspect]
     Indication: PULMONARY FIBROSIS
     Dosage: 3 MG; QD

REACTIONS (2)
  - VENA CAVA THROMBOSIS [None]
  - DEEP VEIN THROMBOSIS [None]
